FAERS Safety Report 5210828-6 (Version None)
Quarter: 2006Q4

REPORT INFORMATION
  Report Type: 
  Country: None (occurrence: None)
  Receive Date: 20061101
  Receipt Date: 20060726
  Transmission Date: 20070319
  Serious: No
  Sender: FDA-Public Use
  Company Number: 2006PV018333

PATIENT
  Age: 57 Year
  Sex: Female
  Weight: 134.2647 kg

DRUGS (5)
  1. SYMLIN [Suspect]
     Indication: DIABETES MELLITUS NON-INSULIN-DEPENDENT
     Dosage: 15 MCG;TID;SC
     Route: 058
     Dates: start: 20060724
  2. NOVOLOG [Concomitant]
  3. NOVOLOG N [Concomitant]
  4. LANTUS [Concomitant]
  5. GLUCOVANCE [Concomitant]

REACTIONS (3)
  - BLOOD GLUCOSE DECREASED [None]
  - BLOOD GLUCOSE INCREASED [None]
  - TREMOR [None]
